FAERS Safety Report 11106523 (Version 2)
Quarter: 2015Q3

REPORT INFORMATION
  Report Type: Report from Study
  Country: ZA (occurrence: ZA)
  Receive Date: 20150512
  Receipt Date: 20150825
  Transmission Date: 20151125
  Serious: Yes (Hospitalization, Other)
  Sender: FDA-Public Use
  Company Number: PHHY2015ZA052996

PATIENT
  Sex: Female
  Weight: 80 kg

DRUGS (1)
  1. ACLASTA [Suspect]
     Active Substance: ZOLEDRONIC ACID
     Indication: OSTEOPOROSIS
     Dosage: 1 DF, UNK
     Route: 042
     Dates: start: 201405

REACTIONS (5)
  - Deafness [Unknown]
  - Impaired healing [Unknown]
  - Hip fracture [Not Recovered/Not Resolved]
  - Cholelithiasis [Unknown]
  - Fall [Not Recovered/Not Resolved]
